FAERS Safety Report 18594658 (Version 1)
Quarter: 2020Q4

REPORT INFORMATION
  Report Type: Report from Study
  Country: US (occurrence: US)
  Receive Date: 20201209
  Receipt Date: 20201209
  Transmission Date: 20210114
  Serious: Yes (Disabling)
  Sender: FDA-Public Use
  Company Number: US-SA-2020SA304433

PATIENT

DRUGS (2)
  1. ALEMTUZUMAB [Suspect]
     Active Substance: ALEMTUZUMAB
     Dosage: 12 MG, QD
     Route: 041
     Dates: start: 20201026, end: 20201026
  2. ALEMTUZUMAB [Suspect]
     Active Substance: ALEMTUZUMAB
     Indication: MULTIPLE SCLEROSIS
     Dosage: 12 MG, QD
     Route: 041
     Dates: start: 20201020, end: 20201023

REACTIONS (13)
  - Muscular weakness [Unknown]
  - Gait disturbance [Unknown]
  - Muscle spasms [Unknown]
  - Condition aggravated [Unknown]
  - Inappropriate schedule of product administration [Unknown]
  - Neck pain [Unknown]
  - Pain [Unknown]
  - Migraine [Unknown]
  - Limb discomfort [Unknown]
  - Feeling abnormal [Unknown]
  - Spinal pain [Unknown]
  - Muscle fatigue [Unknown]
  - Sensitive skin [Unknown]

NARRATIVE: CASE EVENT DATE: 2020
